FAERS Safety Report 5958974-3 (Version None)
Quarter: 2008Q4

REPORT INFORMATION
  Report Type: 
  Country: None (occurrence: None)
  Receive Date: 20081117
  Receipt Date: 20081103
  Transmission Date: 20090506
  Serious: Yes (Other)
  Sender: FDA-Public Use
  Company Number: 2007AL002500

PATIENT
  Age: 71 Year
  Sex: Male

DRUGS (6)
  1. DIAZEPAM [Suspect]
  2. DICLOFENAC SODIUM [Concomitant]
  3. DULOXETINE [Concomitant]
  4. PREDNISOLONE [Concomitant]
  5. TILIDIN ^RATIOPHARM^ [Concomitant]
  6. TILIDINE HYDROCHLORIDE [Concomitant]

REACTIONS (5)
  - ATAXIA [None]
  - BRADYPHRENIA [None]
  - COGNITIVE DISORDER [None]
  - DIZZINESS [None]
  - MEMORY IMPAIRMENT [None]
